FAERS Safety Report 10529770 (Version 1)
Quarter: 2014Q4

REPORT INFORMATION
  Report Type: Report from Study
  Country: JP (occurrence: JP)
  Receive Date: 20141021
  Receipt Date: 20141021
  Transmission Date: 20150528
  Serious: Yes (Other)
  Sender: FDA-Public Use
  Company Number: JP-009507513-1410JPN009407

PATIENT
  Age: 58 Year
  Sex: Male
  Weight: 75 kg

DRUGS (3)
  1. PEGINTRON [Suspect]
     Active Substance: PEGINTERFERON ALFA-2B
     Indication: CHRONIC HEPATITIS C
     Dosage: 1.5 MICROGRAM PER KILOGRAM, QW
     Route: 058
     Dates: start: 20140402, end: 20140618
  2. SIMEPREVIR [Suspect]
     Active Substance: SIMEPREVIR
     Indication: CHRONIC HEPATITIS C
     Dosage: 100 MG, QD
     Route: 048
     Dates: start: 20140402, end: 20140624
  3. REBETOL [Suspect]
     Active Substance: RIBAVIRIN
     Indication: CHRONIC HEPATITIS C
     Dosage: 800 MG, QD
     Route: 048
     Dates: start: 20140402, end: 20140624

REACTIONS (4)
  - Haemoglobin decreased [Not Recovered/Not Resolved]
  - Photosensitivity reaction [Not Recovered/Not Resolved]
  - Blood bilirubin increased [Not Recovered/Not Resolved]
  - Pyrexia [Recovered/Resolved]

NARRATIVE: CASE EVENT DATE: 20140403
